FAERS Safety Report 20724718 (Version 2)
Quarter: 2022Q2

REPORT INFORMATION
  Report Type: Spontaneous
  Country: US (occurrence: US)
  Receive Date: 20220419
  Receipt Date: 20220523
  Transmission Date: 20220721
  Serious: Yes (Hospitalization)
  Sender: FDA-Public Use
  Company Number: US-BAYER-2022A052709

PATIENT
  Age: 37 Year
  Sex: Male

DRUGS (1)
  1. STIVARGA [Suspect]
     Active Substance: REGORAFENIB
     Indication: Glioblastoma
     Dosage: 120 MG, QD

REACTIONS (2)
  - Hypernatraemia [Recovered/Resolved]
  - Off label use [None]

NARRATIVE: CASE EVENT DATE: 20220411
